FAERS Safety Report 9542482 (Version 2)
Quarter: 2013Q3

REPORT INFORMATION
  Report Type: Report from Study
  Country: KP (occurrence: KP)
  Receive Date: 20130923
  Receipt Date: 20130923
  Transmission Date: 20140515
  Serious: Yes (Hospitalization)
  Sender: FDA-Public Use
  Company Number: KP-IPSEN BIOPHARMACEUTICALS, INC.-2010-2423

PATIENT
  Age: 72 Year
  Sex: Male
  Weight: 87 kg

DRUGS (4)
  1. LANREOTIDE AUTOGEL (LANREOTIDE) (LANREOTIDE ACETATE) [Suspect]
     Indication: ACROMEGALY
     Dosage: 120 MG
     Route: 058
     Dates: start: 20100209, end: 20100615
  2. NISOLONE [Concomitant]
     Indication: HYPOPITUITARISM
     Route: 048
     Dates: start: 20081001
  3. SYNTHYROXINE [Concomitant]
     Indication: ACROMEGALY
     Route: 048
     Dates: start: 20081001
  4. SYNTHYROXINE [Concomitant]
     Indication: GIGANTISM

REACTIONS (6)
  - Hyponatraemia [Recovered/Resolved]
  - Dehydration [Recovered/Resolved]
  - Dizziness [Recovered/Resolved]
  - Diarrhoea [Recovered/Resolved]
  - Vomiting [Recovered/Resolved]
  - Asthenia [Recovered/Resolved]
